FAERS Safety Report 9733278 (Version 4)
Quarter: 2016Q1

REPORT INFORMATION
  Report Type: Spontaneous
  Country: US (occurrence: US)
  Receive Date: 20131204
  Receipt Date: 20160209
  Transmission Date: 20160526
  Serious: Yes (Hospitalization, Disabling, Other)
  Sender: FDA-Public Use
  Company Number: US-009507513-1312USA001810

PATIENT
  Sex: Female
  Weight: 57.14 kg

DRUGS (4)
  1. FOSAMAX [Suspect]
     Active Substance: ALENDRONATE SODIUM
     Indication: OSTEOPOROSIS
     Dosage: 70 MG, QW
     Route: 048
     Dates: start: 2001
  2. FOSAMAX PLUS D [Suspect]
     Active Substance: ALENDRONATE SODIUM\CHOLECALCIFEROL
     Indication: OSTEOPENIA
  3. FOSAMAX [Suspect]
     Active Substance: ALENDRONATE SODIUM
     Indication: OSTEOPENIA
     Dosage: 10 MG, QD
     Route: 048
     Dates: start: 20000427
  4. FOSAMAX PLUS D [Suspect]
     Active Substance: ALENDRONATE SODIUM\CHOLECALCIFEROL
     Indication: OSTEOPOROSIS
     Dosage: 70 MG-2800 IU, UNK
     Route: 048
     Dates: start: 20080121, end: 20110726

REACTIONS (14)
  - Tooth extraction [Unknown]
  - Osteoporosis [Not Recovered/Not Resolved]
  - Tooth extraction [Unknown]
  - Atrophy [Unknown]
  - Bone disorder [Unknown]
  - Fibrocystic breast disease [Unknown]
  - Atypical femur fracture [Not Recovered/Not Resolved]
  - Tooth fracture [Unknown]
  - Lower limb fracture [Unknown]
  - Low turnover osteopathy [Not Recovered/Not Resolved]
  - Tooth fracture [Unknown]
  - Hypertension [Unknown]
  - Hip fracture [Not Recovered/Not Resolved]
  - Haemorrhagic anaemia [Unknown]

NARRATIVE: CASE EVENT DATE: 20030516
